FAERS Safety Report 5360081-8 (Version None)
Quarter: 2007Q2

REPORT INFORMATION
  Report Type: 
  Country: None (occurrence: None)
  Receive Date: 20070618
  Receipt Date: 20060425
  Transmission Date: 20071010
  Serious: No
  Sender: FDA-Public Use
  Company Number: US-ASTRAZENECA-2006UW07456

PATIENT
  Age: 63 Year
  Sex: Female
  Weight: 68.9 kg

DRUGS (3)
  1. FASLODEX [Suspect]
     Indication: BREAST CANCER METASTATIC
     Dosage: 2 SHOTS
     Route: 030
     Dates: start: 20060401
  2. FASLODEX [Suspect]
     Dosage: 4 SHOTS
     Route: 030
     Dates: start: 20060301
  3. TYLENOL [Concomitant]

REACTIONS (2)
  - ARTHRALGIA [None]
  - BONE PAIN [None]
